FAERS Safety Report 7585822-0 (Version None)
Quarter: 2011Q2

REPORT INFORMATION
  Report Type: 
  Country: None (occurrence: None)
  Receive Date: 20110624
  Receipt Date: 20110610
  Transmission Date: 20111010
  Serious: Yes (Death, Other)
  Sender: FDA-Public Use
  Company Number: 2011MA007085

PATIENT
  Sex: Female

DRUGS (4)
  1. ALCOHOL [Concomitant]
  2. AMPHETAMINES [Concomitant]
  3. PROPRANOLOL [Concomitant]
  4. VENLAFAXINE HYDROCHLORIDE [Suspect]
     Indication: OVERDOSE
     Dosage: 12600 MG, 1X

REACTIONS (9)
  - CONFUSIONAL STATE [None]
  - MYOCARDIAL INFARCTION [None]
  - CONVULSION [None]
  - MYDRIASIS [None]
  - INTENTIONAL OVERDOSE [None]
  - HYPOTENSION [None]
  - VENTRICULAR TACHYCARDIA [None]
  - HYPERHIDROSIS [None]
  - PERICARDITIS [None]
